FAERS Safety Report 15461308 (Version 3)
Quarter: 2018Q4

REPORT INFORMATION
  Report Type: Spontaneous
  Country: US (occurrence: US)
  Receive Date: 20181003
  Receipt Date: 20181010
  Transmission Date: 20190204
  Serious: Yes (Hospitalization)
  Sender: FDA-Public Use
  Company Number: US-009507513-1809USA012895

PATIENT
  Age: 72 Year
  Sex: Female
  Weight: 83.9 kg

DRUGS (8)
  1. DIFICID [Suspect]
     Active Substance: FIDAXOMICIN
     Indication: CLOSTRIDIUM DIFFICILE INFECTION
     Dosage: 200 MG, TWICE A DAY
     Route: 048
     Dates: start: 20180923, end: 20181005
  2. GLIPIZIDE. [Concomitant]
     Active Substance: GLIPIZIDE
  3. VANCOMYCIN [Suspect]
     Active Substance: VANCOMYCIN
  4. VALSARTAN. [Concomitant]
     Active Substance: VALSARTAN
  5. LOPRESSOR [Concomitant]
     Active Substance: METOPROLOL TARTRATE
  6. CITALOPRAM [Concomitant]
     Active Substance: CITALOPRAM HYDROBROMIDE
  7. PLAVIX [Concomitant]
     Active Substance: CLOPIDOGREL BISULFATE
  8. PRAVASTATIN. [Concomitant]
     Active Substance: PRAVASTATIN

REACTIONS (2)
  - Treatment failure [Recovering/Resolving]
  - Clostridium test positive [Recovering/Resolving]

NARRATIVE: CASE EVENT DATE: 201809
